FAERS Safety Report 8901722 (Version 2)
Quarter: 2013Q1

REPORT INFORMATION
  Report Type: Spontaneous
  Country: US (occurrence: None)
  Receive Date: 20121105
  Receipt Date: 20121204
  Transmission Date: 20140127
  Serious: Yes (Other)
  Sender: FDA-Public Use
  Company Number: US-1194882

PATIENT
  Age: 56 Year
  Sex: Female

DRUGS (3)
  1. PATANASE NASAL SPRAY [Suspect]
     Indication: SEASONAL ALLERGY
     Dosage: 2 SPRAYS EACH NOSTRIL
     Route: 045
     Dates: start: 20121001, end: 20121005
  2. CLARITIN [Concomitant]
  3. NASONEX [Concomitant]

REACTIONS (2)
  - Anosmia [None]
  - Dysgeusia [None]
